FAERS Safety Report 19270019 (Version 1)
Quarter: 2021Q2

REPORT INFORMATION
  Report Type: Spontaneous
  Country: CN (occurrence: CN)
  Receive Date: 20210518
  Receipt Date: 20210518
  Transmission Date: 20210717
  Serious: Yes (Hospitalization)
  Sender: FDA-Public Use
  Company Number: CN-PFIZER INC-2021517663

PATIENT
  Age: 41 Year
  Sex: Male

DRUGS (4)
  1. DIFLUCAN [Suspect]
     Active Substance: FLUCONAZOLE
     Indication: ENCEPHALITIS FUNGAL
     Dosage: 400 ML, QD (ONCE A DAY)
     Route: 041
     Dates: start: 20210422, end: 202104
  2. AMPHOTERICIN B, LIPOSOME [Concomitant]
     Active Substance: AMPHOTERICIN B
     Indication: MENINGITIS CRYPTOCOCCAL
  3. AMPHOTERICIN B, LIPOSOME [Concomitant]
     Active Substance: AMPHOTERICIN B
     Indication: ENCEPHALITIS FUNGAL
     Dosage: 60 MG, ONCE A DAY
     Route: 041
     Dates: start: 20210406, end: 20210506
  4. DIFLUCAN [Suspect]
     Active Substance: FLUCONAZOLE
     Indication: MENINGITIS CRYPTOCOCCAL
     Dosage: 300 ML, QD (ONCE A DAY)
     Route: 041
     Dates: start: 20210426, end: 20210428

REACTIONS (2)
  - Vomiting [Recovering/Resolving]
  - Retching [Unknown]

NARRATIVE: CASE EVENT DATE: 20210424
